FAERS Safety Report 6355079-7 (Version None)
Quarter: 2009Q3

REPORT INFORMATION
  Report Type: 
  Country: None (occurrence: None)
  Receive Date: 20090914
  Receipt Date: 20090904
  Transmission Date: 20100115
  Serious: Yes (Death, Hospitalization)
  Sender: FDA-Public Use
  Company Number: RO-SANOFI-SYNTHELABO-A01200905152

PATIENT
  Sex: Female
  Weight: 70 kg

DRUGS (6)
  1. KYTRIL [Concomitant]
     Indication: PROPHYLAXIS
     Dates: start: 20090113, end: 20090116
  2. AVE5026 OR PLACEBO [Concomitant]
     Indication: DEEP VEIN THROMBOSIS
     Dosage: UNK
     Dates: start: 20081231, end: 20090210
  3. AVE5026 OR PLACEBO [Concomitant]
     Dosage: UNK
     Dates: start: 20090212, end: 20090318
  4. CAPECITABINE [Suspect]
     Indication: COLON CANCER
     Dosage: CUMMULATIVE DOSE 196 GRAMS UNK
     Route: 048
  5. BEVACIZUMAB [Suspect]
     Indication: COLON CANCER
     Dosage: CUMMULATIVE DOSE 1050 MG UNK
     Route: 041
  6. OXALIPLATIN [Suspect]
     Indication: COLON CANCER
     Dosage: CUMMULATIVE DOSE 880 MG UNK
     Route: 041

REACTIONS (2)
  - DEEP VEIN THROMBOSIS [None]
  - METASTASES TO LIVER [None]
